FAERS Safety Report 8138014-0 (Version None)
Quarter: 2012Q1

REPORT INFORMATION
  Report Type: 
  Country: None (occurrence: None)
  Receive Date: 20120215
  Receipt Date: 20120206
  Transmission Date: 20120608
  Serious: Yes (Congenital Anomaly, Other)
  Sender: FDA-Public Use
  Company Number: US-PFIZER INC-2012026061

PATIENT
  Sex: Male
  Weight: 4 kg

DRUGS (8)
  1. PROZAC [Concomitant]
     Dosage: UNK
     Route: 064
     Dates: start: 20100329
  2. MACROBID [Concomitant]
     Dosage: 100 MG, 2X/DAY FOR FIVE DAYS
     Route: 064
     Dates: start: 20100504
  3. GLYBURIDE [Concomitant]
     Dosage: 2.5 MG, 1X/DAY
     Route: 064
     Dates: start: 20100416
  4. MACROBID [Concomitant]
     Dosage: 100 MG, 2X/DAY FOR SEVEN DAYS
     Route: 064
     Dates: start: 20091123
  5. GLYBURIDE [Concomitant]
     Dosage: 2.5 MG, 2X/DAY
     Route: 064
     Dates: start: 20100513
  6. MULTI-VITAMINS [Concomitant]
     Dosage: ONCE DAILY
     Route: 064
  7. ZOLOFT [Suspect]
     Dosage: 50 MG, 1X/DAY
     Route: 064
     Dates: start: 20040701
  8. VALTREX [Concomitant]
     Indication: HERPES SIMPLEX
     Dosage: 500 MG, 2X/DAY
     Route: 064
     Dates: start: 20100320, end: 20100322

REACTIONS (3)
  - MATERNAL EXPOSURE TIMING UNSPECIFIED [None]
  - DIVERTICULITIS MECKEL'S [None]
  - VENTRICULAR SEPTAL DEFECT [None]
